FAERS Safety Report 19227533 (Version 1)
Quarter: 2021Q2

REPORT INFORMATION
  Report Type: Spontaneous
  Country: CZ (occurrence: CZ)
  Receive Date: 20210506
  Receipt Date: 20210506
  Transmission Date: 20210717
  Serious: Yes (Life-Threatening, Hospitalization, Other)
  Sender: FDA-Public Use
  Company Number: NVSC2021CZ062855

PATIENT
  Age: 8 Year
  Sex: Male

DRUGS (7)
  1. INFLIXIMAB [Suspect]
     Active Substance: INFLIXIMAB
     Indication: COLITIS ULCERATIVE
     Dosage: 5 MG/KG EVERY 8 WEEKS
     Route: 065
  2. ADALIMUMAB [Suspect]
     Active Substance: ADALIMUMAB
     Indication: COELIAC DISEASE
  3. AZATHIOPRINE. [Suspect]
     Active Substance: AZATHIOPRINE
     Indication: COELIAC DISEASE
     Dosage: 1.2 MG/KG/DAY
     Route: 065
  4. INFLIXIMAB [Suspect]
     Active Substance: INFLIXIMAB
     Dosage: 15 MG/KG (6TH DOSE)
     Route: 065
  5. ADALIMUMAB [Suspect]
     Active Substance: ADALIMUMAB
     Indication: COLITIS ULCERATIVE
     Dosage: UNK
     Route: 065
  6. INFLIXIMAB [Suspect]
     Active Substance: INFLIXIMAB
     Indication: COELIAC DISEASE
     Dosage: 5 MG/KG EVERY 6 WEEKS
     Route: 065
  7. AZATHIOPRINE. [Suspect]
     Active Substance: AZATHIOPRINE
     Indication: COLITIS ULCERATIVE
     Dosage: 2.5 MG/KG, QD
     Route: 065

REACTIONS (9)
  - Condition aggravated [Unknown]
  - Overdose [Unknown]
  - Therapeutic response shortened [Unknown]
  - Hypertension [Unknown]
  - Colitis ulcerative [Recovering/Resolving]
  - Posterior reversible encephalopathy syndrome [Recovered/Resolved]
  - Therapeutic product effect incomplete [Unknown]
  - Off label use [Unknown]
  - Diarrhoea haemorrhagic [Unknown]
